FAERS Safety Report 6323159-8 (Version None)
Quarter: 2009Q3

REPORT INFORMATION
  Report Type: 
  Country: None (occurrence: None)
  Receive Date: 20090824
  Receipt Date: 20090812
  Transmission Date: 20100115
  Serious: Yes (Other)
  Sender: FDA-Public Use
  Company Number: TH-PFIZER INC-2009254305

PATIENT
  Age: 56 Year

DRUGS (4)
  1. ETOPOSIDE [Suspect]
     Indication: LYMPHOMA
  2. CISPLATIN [Suspect]
     Indication: LYMPHOMA
  3. CYTOSAR-U [Suspect]
     Indication: LYMPHOMA
  4. PREDNISOLONE AND PREDNISOLONE STEAGLATE [Suspect]
     Indication: LYMPHOMA

REACTIONS (1)
  - RENAL FAILURE [None]
